FAERS Safety Report 8844653 (Version 1)
Quarter: 2012Q4

REPORT INFORMATION
  Report Type: Spontaneous
  Country: US (occurrence: None)
  Receive Date: 20121012
  Receipt Date: 20121012
  Transmission Date: 20130627
  Serious: Yes (Other)
  Sender: FDA-Public Use
  Company Number: 2012P1060547

PATIENT
  Age: 23 Year
  Sex: Female

DRUGS (5)
  1. PREDNISONE [Suspect]
     Indication: B-CELL TYPE ACUTE LEUKEMIA
  2. PEGASPARGASE [Suspect]
     Indication: B-CELL TYPE ACUTE LEUKEMIA
     Dosage: /m^2
     Route: 042
  3. DEXAMETHASONE (DEXAMETHASONE) [Concomitant]
  4. METFORMIN [Concomitant]
  5. INSULIN [Concomitant]

REACTIONS (1)
  - Hypertriglyceridaemia [None]
